FAERS Safety Report 4852312-5 (Version None)
Quarter: 2005Q4

REPORT INFORMATION
  Report Type: 
  Country: None (occurrence: None)
  Receive Date: 20051213
  Receipt Date: 20051005
  Transmission Date: 20060501
  Serious: Yes (Hospitalization, Disabling)
  Sender: FDA-Public Use
  Company Number: US-MERCK-0510USA04644

PATIENT
  Age: 55 Year
  Sex: Male
  Weight: 80 kg

DRUGS (2)
  1. VIOXX [Suspect]
     Indication: SHOULDER PAIN
     Route: 048
     Dates: start: 20000301, end: 20000401
  2. HYDROCODONE BITARTRATE [Concomitant]
     Indication: PAIN
     Route: 065

REACTIONS (15)
  - ANKLE FRACTURE [None]
  - ANXIETY [None]
  - ARTERIOPATHIC DISEASE [None]
  - ARTHRALGIA [None]
  - BRADYCARDIA [None]
  - CARDIOVASCULAR DISORDER [None]
  - CORONARY ARTERY DISEASE [None]
  - DEPRESSION [None]
  - HAEMATURIA [None]
  - HYPERLIPIDAEMIA [None]
  - HYPOTENSION [None]
  - MYOCARDIAL INFARCTION [None]
  - PANIC ATTACK [None]
  - PEPTIC ULCER [None]
  - TREATMENT NONCOMPLIANCE [None]
